FAERS Safety Report 25543865 (Version 1)
Quarter: 2025Q3

REPORT INFORMATION
  Report Type: Spontaneous
  Country: EU (occurrence: EU)
  Receive Date: 20250711
  Receipt Date: 20250711
  Transmission Date: 20251020
  Serious: Yes (Hospitalization, Other)
  Sender: PFIZER
  Company Number: EU-PFIZER INC-PV202500083061

PATIENT
  Age: 61 Year
  Sex: Female

DRUGS (5)
  1. ISAVUCONAZONIUM SULFATE [Suspect]
     Active Substance: ISAVUCONAZONIUM SULFATE
     Indication: Prophylaxis
     Dosage: 200 MG (2 TABLETS OF 100 MG), 1X/DAY
     Route: 048
     Dates: start: 20250130, end: 20250401
  2. MEROPENEM [Suspect]
     Active Substance: MEROPENEM
     Indication: Prophylaxis
     Dosage: 1 G, 3X/DAY
     Route: 042
     Dates: start: 20250312, end: 20250328
  3. VENETOCLAX [Suspect]
     Active Substance: VENETOCLAX
     Indication: Acute myeloid leukaemia
     Dosage: 200 MG, 1X/DAY
     Route: 048
     Dates: start: 20250312, end: 20250401
  4. AUGMENTIN [Suspect]
     Active Substance: AMOXICILLIN\CLAVULANATE POTASSIUM
     Indication: Pyrexia
     Dosage: 1 DF, 3X/DAY
     Dates: start: 20250325, end: 20250328
  5. XOSPATA [Concomitant]
     Active Substance: GILTERITINIB
     Dates: start: 20250130, end: 20250428

REACTIONS (2)
  - Hepatitis cholestatic [Not Recovered/Not Resolved]
  - Off label use [Unknown]

NARRATIVE: CASE EVENT DATE: 20250130
